FAERS Safety Report 4576552-8 (Version None)
Quarter: 2005Q1

REPORT INFORMATION
  Report Type: 
  Country: None (occurrence: None)
  Receive Date: 20050119
  Receipt Date: 20040514
  Transmission Date: 20050727
  Serious: Yes (Hospitalization)
  Sender: FDA-Public Use
  Company Number: A03200401559

PATIENT
  Age: 80 Year
  Sex: Female

DRUGS (1)
  1. PLAVIX [Suspect]
     Dosage: 75 MG QD - ORAL; A FEW MONTHS
     Route: 048
     Dates: start: 20030101

REACTIONS (1)
  - GASTROINTESTINAL HAEMORRHAGE [None]
